FAERS Safety Report 8081419-7 (Version None)
Quarter: 2012Q1

REPORT INFORMATION
  Report Type: 
  Country: None (occurrence: None)
  Receive Date: 20120130
  Receipt Date: 20120120
  Transmission Date: 20120608
  Serious: Yes (Life-Threatening, Other)
  Sender: FDA-Public Use
  Company Number: US-JNJFOC-20111204648

PATIENT
  Sex: Female
  Weight: 98.43 kg

DRUGS (11)
  1. XARELTO [Suspect]
     Indication: KNEE ARTHROPLASTY
     Route: 065
     Dates: start: 20111129, end: 20111201
  2. JANUVIA [Concomitant]
  3. SIMVASTATIN [Concomitant]
  4. CARVEDILOL [Concomitant]
  5. XARELTO [Suspect]
     Indication: THROMBOSIS PROPHYLAXIS
     Route: 065
     Dates: start: 20111129, end: 20111201
  6. LISINOPRIL [Concomitant]
  7. VITAMIN D [Concomitant]
  8. SYNTHROID [Concomitant]
  9. MELOXICAM [Concomitant]
  10. FUROSEMIDE [Concomitant]
  11. ASPIRIN [Concomitant]

REACTIONS (3)
  - PULMONARY EMBOLISM [None]
  - HAEMOGLOBIN DECREASED [None]
  - DEEP VEIN THROMBOSIS [None]
